FAERS Safety Report 21458182 (Version 1)
Quarter: 2022Q4

REPORT INFORMATION
  Report Type: Spontaneous
  Country: None (occurrence: CA)
  Receive Date: 20221014
  Receipt Date: 20221014
  Transmission Date: 20230113
  Serious: Yes (Hospitalization)
  Sender: FDA-Public Use
  Company Number: CA-B.Braun Medical Inc.-2133854

PATIENT
  Age: 8 Year
  Sex: Male

DRUGS (7)
  1. SODIUM CHLORIDE [Suspect]
     Active Substance: SODIUM CHLORIDE
  2. CERITINIB [Suspect]
     Active Substance: CERITINIB
  3. CYTARABINE [Suspect]
     Active Substance: CYTARABINE
  4. DEXAMETHASONE [Suspect]
     Active Substance: DEXAMETHASONE
  5. HYDROCORTISONE (HYDROCORTISONE ACETATE) [Suspect]
     Active Substance: HYDROCORTISONE ACETATE
  6. MANNITOL [Suspect]
     Active Substance: MANNITOL
  7. METHOTREXATE [Suspect]
     Active Substance: METHOTREXATE

REACTIONS (1)
  - Drug ineffective [Unknown]
